FAERS Safety Report 19643891 (Version 5)
Quarter: 2021Q4

REPORT INFORMATION
  Report Type: Other
  Country: IT (occurrence: IT)
  Receive Date: 20210730
  Receipt Date: 20211129
  Transmission Date: 20220304
  Serious: Yes (Hospitalization)
  Sender: FDA-Public Use
  Company Number: IT-002147023-NVSC2021IT162813

PATIENT
  Age: 60 Year
  Sex: Male

DRUGS (2)
  1. RITUXIMAB [Suspect]
     Active Substance: RITUXIMAB
     Indication: Follicular lymphoma
     Dosage: UNK
     Route: 065
  2. BENDAMUSTINE [Suspect]
     Active Substance: BENDAMUSTINE
     Indication: Follicular lymphoma
     Route: 065

REACTIONS (4)
  - Secondary immunodeficiency [Unknown]
  - Hypogammaglobulinaemia [Unknown]
  - Lymphopenia [Unknown]
  - COVID-19 pneumonia [Recovered/Resolved]
